FAERS Safety Report 12077120 (Version 1)
Quarter: 2016Q1

REPORT INFORMATION
  Report Type: Spontaneous
  Country: FR (occurrence: FR)
  Receive Date: 20160215
  Receipt Date: 20160215
  Transmission Date: 20160526
  Serious: Yes (Other)
  Sender: FDA-Public Use
  Company Number: FR-BRISTOL-MYERS SQUIBB COMPANY-BMS-2016-008336

PATIENT
  Age: 72 Year
  Sex: Female

DRUGS (1)
  1. HYDREA [Suspect]
     Active Substance: HYDROXYUREA
     Indication: POLYCYTHAEMIA VERA
     Dosage: 9 DF, QWK
     Route: 048
     Dates: start: 2010

REACTIONS (6)
  - Dermatomyositis [Not Recovered/Not Resolved]
  - Chalazion [Not Recovered/Not Resolved]
  - Erythema of eyelid [Not Recovered/Not Resolved]
  - Cryotherapy [Not Recovered/Not Resolved]
  - Actinic keratosis [Not Recovered/Not Resolved]
  - Ephelides [Not Recovered/Not Resolved]

NARRATIVE: CASE EVENT DATE: 20140527
